FAERS Safety Report 5309041-3 (Version None)
Quarter: 2007Q2

REPORT INFORMATION
  Report Type: 
  Country: None (occurrence: None)
  Receive Date: 20070426
  Receipt Date: 20070417
  Transmission Date: 20071010
  Serious: Yes (Other)
  Sender: FDA-Public Use
  Company Number: GB-ABBOTT-07P-167-0365264-00

PATIENT
  Sex: Male

DRUGS (14)
  1. CYCLOSPORINE [Suspect]
     Indication: NEPHROTIC SYNDROME
     Dosage: NOT REPORTED
  2. CYCLOSPORINE [Suspect]
     Dosage: NOT REPORTED
  3. CYCLOSPORINE [Suspect]
     Dosage: HIGH DOSE
  4. PREDNISOLONE [Suspect]
     Indication: NEPHROTIC SYNDROME
     Route: 048
  5. PREDNISOLONE [Suspect]
  6. PREDNISOLONE [Suspect]
  7. PREDNISOLONE [Suspect]
     Dosage: NOT REPORTED
  8. PREDNISOLONE [Suspect]
     Dosage: HIGH DOSE
  9. CYCLOPHOSPHAMIDE [Suspect]
     Indication: NEPHROTIC SYNDROME
     Dosage: NOT REPORTED
  10. CYCLOPHOSPHAMIDE [Suspect]
     Dosage: NOT REPORTED
  11. CYCLOPHOSPHAMIDE [Suspect]
     Dosage: NOT REPORTED
  12. CYCLOPHOSPHAMIDE [Suspect]
     Dosage: NOT REPORTED
  13. CYCLOPHOSPHAMIDE [Suspect]
     Dosage: NOT REPORTED
  14. CYCLOPHOSPHAMIDE [Suspect]
     Dosage: HIGH DOSE

REACTIONS (1)
  - NEPHRITIS INTERSTITIAL [None]
